FAERS Safety Report 20861819 (Version 3)
Quarter: 2022Q3

REPORT INFORMATION
  Report Type: Spontaneous
  Country: GB (occurrence: GB)
  Receive Date: 20220523
  Receipt Date: 20220721
  Transmission Date: 20221026
  Serious: Yes (Hospitalization, Disabling, Other)
  Sender: FDA-Public Use
  Company Number: GB-ELI_LILLY_AND_COMPANY-GB202205003864

PATIENT
  Age: 81 Year
  Sex: Female

DRUGS (4)
  1. HUMULIN N [Suspect]
     Active Substance: INSULIN HUMAN
     Indication: Diabetes mellitus
     Dosage: UNK UNK, UNKNOWN
     Route: 065
     Dates: start: 20210920, end: 202201
  2. HUMULIN N [Suspect]
     Active Substance: INSULIN HUMAN
     Indication: Diabetes mellitus
     Dosage: UNK UNK, UNKNOWN
     Route: 065
     Dates: start: 20210920, end: 202201
  3. TRAMADOL [Concomitant]
     Active Substance: TRAMADOL
     Indication: Product used for unknown indication
  4. ACETAMINOPHEN [Concomitant]
     Active Substance: ACETAMINOPHEN
     Indication: Product used for unknown indication

REACTIONS (21)
  - Gait inability [Unknown]
  - Limb mass [Unknown]
  - Pain in extremity [Unknown]
  - Cough [Recovered/Resolved]
  - Musculoskeletal disorder [Unknown]
  - Oedema [Unknown]
  - Deafness [Recovered/Resolved]
  - Blindness [Recovered/Resolved]
  - Dizziness [Unknown]
  - Fall [Unknown]
  - Hypoacusis [Unknown]
  - Memory impairment [Unknown]
  - Vision blurred [Unknown]
  - Eye haemorrhage [Unknown]
  - Hypoglycaemia [Unknown]
  - Insomnia [Recovered/Resolved]
  - Mobility decreased [Unknown]
  - Speech disorder [Unknown]
  - Peripheral swelling [Not Recovered/Not Resolved]
  - Blood glucose increased [Unknown]
  - Drug ineffective [Unknown]
